FAERS Safety Report 14590713 (Version 2)
Quarter: 2018Q2

REPORT INFORMATION
  Report Type: Spontaneous
  Country: US (occurrence: US)
  Receive Date: 20180302
  Receipt Date: 20180405
  Transmission Date: 20180711
  Serious: Yes (Hospitalization)
  Sender: FDA-Public Use
  Company Number: US-MYLANLABS-2018M1012726

PATIENT
  Sex: Female
  Weight: 64 kg

DRUGS (2)
  1. SUMATRIPTAN TABLETS, USP [Suspect]
     Active Substance: SUMATRIPTAN
     Indication: MIGRAINE
     Dosage: UNK
     Route: 048
  2. SUMATRIPTAN. [Suspect]
     Active Substance: SUMATRIPTAN
     Indication: MIGRAINE
     Dosage: UNK

REACTIONS (11)
  - Chest discomfort [Recovered/Resolved]
  - Incorrect dosage administered [Unknown]
  - Treatment noncompliance [Unknown]
  - Nausea [Recovered/Resolved]
  - Abdominal pain upper [Recovered/Resolved]
  - Dizziness [Unknown]
  - Hot flush [Recovered/Resolved]
  - Muscular weakness [Unknown]
  - Blood pressure increased [Recovered/Resolved]
  - Migraine [Recovered/Resolved]
  - Pallor [Recovered/Resolved]
